FAERS Safety Report 25556572 (Version 1)
Quarter: 2025Q3

REPORT INFORMATION
  Report Type: Spontaneous
  Country: US (occurrence: US)
  Receive Date: 20250715
  Receipt Date: 20250715
  Transmission Date: 20251021
  Serious: Yes (Other)
  Sender: AMGEN
  Company Number: US-AMGEN-USASP2025135438

PATIENT

DRUGS (1)
  1. PROLIA [Suspect]
     Active Substance: DENOSUMAB
     Indication: Osteoporosis
     Route: 065

REACTIONS (6)
  - Lung transplant rejection [Unknown]
  - Hypocalcaemia [Unknown]
  - Bone pain [Unknown]
  - Respiratory tract infection [Unknown]
  - Fracture [Unknown]
  - Donor specific antibody present [Unknown]
